FAERS Safety Report 7290421-4 (Version None)
Quarter: 2011Q1

REPORT INFORMATION
  Report Type: 
  Country: None (occurrence: None)
  Receive Date: 20110214
  Receipt Date: 20110202
  Transmission Date: 20110831
  Serious: Yes (Other)
  Sender: FDA-Public Use
  Company Number: US-SANOFI-AVENTIS-2010SA076560

PATIENT
  Age: 85 Year
  Sex: Male
  Weight: 62 kg

DRUGS (8)
  1. HYDROCHLOROTHIAZIDE/LOSARTAN POTASSIUM [Concomitant]
     Dosage: 100/12.5 MG QD
  2. LEVOTHYROXINE SODIUM [Concomitant]
     Route: 048
  3. PSYLLIUM HYDROPHILIC MUCILLOID/SENNA ALEXANDRINA [Concomitant]
  4. PROCARDIA [Concomitant]
  5. FENOFIBRATE [Concomitant]
  6. LORAZEPAM [Concomitant]
  7. MULTAQ [Suspect]
     Indication: ATRIAL FIBRILLATION
     Route: 048
     Dates: start: 20101201
  8. PLAVIX [Concomitant]

REACTIONS (1)
  - ATRIAL FIBRILLATION [None]
